FAERS Safety Report 10241341 (Version 1)
Quarter: 2014Q1

REPORT INFORMATION
  Report Type: Spontaneous
  Country: US (occurrence: None)
  Receive Date: 20140306
  Receipt Date: 20140306
  Transmission Date: 20141002
  Serious: Yes (Other)
  Sender: FDA-Public Use
  Company Number: 163-21880-13122655

PATIENT
  Age: 66 Year
  Sex: Female
  Weight: 70.3 kg

DRUGS (9)
  1. REVLIMID (LENALIDOMIDE) [Suspect]
     Indication: PLASMA CELL MYELOMA
     Dosage: 10MG, 1 IN 1D, PO
     Route: 048
     Dates: start: 201301
  2. PANTOPRAZOLE SODIUM (PANTOPRAZOLE SODIUM) [Concomitant]
  3. LYRICA (PREGABALIN) (CAPSULES) [Concomitant]
  4. VENTOLIN HFA (SALBUTAMOL SULFATE) (CAPSULES) [Concomitant]
  5. MELATONIN (MELATONIN) (TABLET) [Concomitant]
  6. VITAMIN B-12 (CYANOCOBALAMIN) (TALETS) [Concomitant]
  7. FERROUS SULFATE (FERROUS SULFATE) (ENTERIC-COATED TABLET) [Concomitant]
  8. BENZONATATE (ENZONATATE) (CAPSULES) [Concomitant]
  9. LEXAPRO (ESCITALOPRAM OXALATE) (TABLETS) [Concomitant]

REACTIONS (1)
  - White blood cell count decreased [None]
